APPROVED DRUG PRODUCT: FLUDROCORTISONE ACETATE
Active Ingredient: FLUDROCORTISONE ACETATE
Strength: 0.1MG
Dosage Form/Route: TABLET;ORAL
Application: A091302 | Product #001
Applicant: HIKMA PHARMACEUTICALS
Approved: Jul 22, 2011 | RLD: No | RS: No | Type: DISCN